FAERS Safety Report 8456702-3 (Version None)
Quarter: 2012Q2

REPORT INFORMATION
  Report Type: 
  Country: None (occurrence: None)
  Receive Date: 20120621
  Receipt Date: 20120611
  Transmission Date: 20120825
  Serious: Yes (Hospitalization)
  Sender: FDA-Public Use
  Company Number: CA-ABBOTT-12P-028-0944859-01

PATIENT
  Sex: Female

DRUGS (22)
  1. ACETAMINOPHEN [Concomitant]
     Indication: MIGRAINE
     Dates: start: 19850101
  2. TYLENOL W/ CODEINE NO. 3 [Concomitant]
     Indication: ABDOMINAL PAIN
  3. NEXIUM [Concomitant]
     Indication: DYSPEPSIA
     Dates: start: 20020201, end: 20090719
  4. NASONEX [Concomitant]
     Indication: NASAL CONGESTION
  5. ACETAMINOPHEN [Concomitant]
     Indication: SINUS HEADACHE
  6. AMOXICILLIN AND CLAVULANATE POTASSIUM [Concomitant]
     Indication: RECTAL ABSCESS
     Dates: start: 20110424, end: 20110528
  7. HUMIRA [Suspect]
     Indication: CROHN'S DISEASE
     Route: 058
     Dates: end: 20110907
  8. NEXIUM [Concomitant]
     Route: 048
     Dates: start: 20090720, end: 20120510
  9. DILTIAZEM HYDROCHOLORIDE [Concomitant]
     Indication: ANAL FISSURE
     Dosage: 1 APPLICATION TOPICALLY (RECTALLY)
     Route: 054
     Dates: start: 20100818, end: 20120424
  10. ADVIL COLD AND SINUS [Concomitant]
     Indication: PRODUCT USED FOR UNKNOWN INDICATION
     Dosage: 1-2 TABLETS
     Dates: start: 20081227
  11. CLONAZEPAM [Concomitant]
     Indication: PRODUCT USED FOR UNKNOWN INDICATION
     Dates: start: 20061216
  12. CLARITIN [Concomitant]
     Indication: HYPERSENSITIVITY
     Route: 048
     Dates: start: 20030101, end: 20110115
  13. TYLENOL W/ CODEINE NO. 3 [Concomitant]
     Indication: MIGRAINE
     Route: 048
     Dates: start: 20040311
  14. TYLENOL SINUS [Concomitant]
     Indication: SINUS HEADACHE
     Route: 048
     Dates: start: 20051003
  15. VENTOLIN [Concomitant]
     Indication: ASTHMA
     Dates: start: 20040701
  16. CALCIUM CARBONATE [Concomitant]
     Indication: DYSPEPSIA
     Dosage: 1-2 TABLETS
     Dates: start: 20020201
  17. CETIRIZINE HCL [Concomitant]
     Indication: HYPERSENSITIVITY
     Route: 048
     Dates: start: 20030101
  18. TYLENOL W/ CODEINE NO. 3 [Concomitant]
     Indication: SINUS HEADACHE
  19. IBUPROFEN (ADVIL) [Concomitant]
     Indication: MIGRAINE
     Route: 048
     Dates: start: 20050415
  20. PREDNISONE TAB [Concomitant]
     Indication: CROHN'S DISEASE
     Dates: start: 20110822, end: 20110828
  21. PREDNISONE TAB [Concomitant]
     Route: 048
     Dates: start: 20110829, end: 20110904
  22. NASONEX [Concomitant]
     Indication: SINUS CONGESTION
     Dosage: 2 SPRAYS/NOSTRIL
     Route: 045
     Dates: start: 20090721

REACTIONS (1)
  - CROHN'S DISEASE [None]
